FAERS Safety Report 6397200-0 (Version None)
Quarter: 2009Q4

REPORT INFORMATION
  Report Type: 
  Country: None (occurrence: None)
  Receive Date: 20091012
  Receipt Date: 20090928
  Transmission Date: 20100525
  Serious: Yes (Hospitalization)
  Sender: FDA-Public Use
  Company Number: JP-ASTRAZENECA-2009SE09524

PATIENT
  Age: 20354 Day
  Sex: Female

DRUGS (2)
  1. MEROPEN [Suspect]
     Indication: PANCREATITIS ACUTE
     Route: 042
     Dates: start: 20090803, end: 20090813
  2. MEROPEN [Suspect]
     Route: 042
     Dates: start: 20090814, end: 20090816

REACTIONS (1)
  - THROMBOCYTOSIS [None]
